FAERS Safety Report 25980666 (Version 1)
Quarter: 2025Q4

REPORT INFORMATION
  Report Type: Spontaneous
  Country: US (occurrence: None)
  Receive Date: 20251030
  Receipt Date: 20251030
  Transmission Date: 20260118
  Serious: Yes (Death)
  Sender: FDA-CTU
  Company Number: None

PATIENT
  Sex: Female

DRUGS (1)
  1. EVENITY [Suspect]
     Active Substance: ROMOSOZUMAB-AQQG
     Indication: Senile osteoporosis
     Dosage: INJECT 2.34 ML (210 MG TOTAL) UNDER THE SKIN EVERY 30 (THIRTY) DAYS.?
     Route: 058
     Dates: start: 20250729

REACTIONS (1)
  - Death [None]
